FAERS Safety Report 7270804-9 (Version None)
Quarter: 2011Q1

REPORT INFORMATION
  Report Type: 
  Country: None (occurrence: None)
  Receive Date: 20110202
  Receipt Date: 20110124
  Transmission Date: 20110831
  Serious: Yes (Other)
  Sender: FDA-Public Use
  Company Number: JP-AMGEN-JPNCT2010011106

PATIENT
  Age: 76 Year
  Sex: Male
  Weight: 60 kg

DRUGS (18)
  1. CORTICOSTEROIDS [Concomitant]
     Indication: PROPHYLAXIS
     Route: 065
  2. HARNAL D [Concomitant]
     Route: 048
  3. VOALLA [Concomitant]
     Route: 062
     Dates: start: 20101004
  4. DECADRON [Concomitant]
     Indication: PROPHYLAXIS
     Route: 041
     Dates: start: 20100922, end: 20101126
  5. OXALIPLATIN [Suspect]
     Indication: COLORECTAL CANCER
     Dosage: 100 MG, Q2WK
     Route: 041
     Dates: start: 20100922, end: 20101125
  6. BIOFERMIN [Concomitant]
     Route: 048
  7. MAGMITT [Concomitant]
     Route: 048
  8. ISODINE GARGLE [Concomitant]
     Route: 049
     Dates: start: 20101012, end: 20101103
  9. CALCIUM LEVOFOLINATE [Concomitant]
     Indication: COLORECTAL CANCER
     Dosage: UNK UNK, Q2WK
     Route: 041
     Dates: start: 20101007
  10. MUCOSTA [Concomitant]
     Route: 048
  11. PANITUMUMAB [Suspect]
     Indication: COLORECTAL CANCER
     Dosage: 6 MG/KG, Q2WK
     Route: 041
     Dates: start: 20101007, end: 20101125
  12. LEUCOVORIN CALCIUM [Suspect]
     Indication: COLORECTAL CANCER
     Dosage: 250 MG, Q2WK
     Route: 041
     Dates: start: 20100922, end: 20101125
  13. FLUOROURACIL [Suspect]
     Indication: COLORECTAL CANCER
     Dosage: 500 MG, Q2WK
     Route: 041
     Dates: start: 20100922, end: 20101125
  14. HIRUDOID SOFT [Concomitant]
     Dosage: UNK
     Route: 062
     Dates: start: 20101004
  15. HIRUDOID SOFT [Concomitant]
     Route: 062
     Dates: start: 20101004
  16. OLMETEC [Concomitant]
     Route: 048
  17. GRANISETRON HCL [Concomitant]
     Indication: PROPHYLAXIS
     Route: 041
     Dates: start: 20101007, end: 20101126
  18. MUCOSTA [Concomitant]
     Route: 048

REACTIONS (7)
  - STOMATITIS [None]
  - HYPERAMYLASAEMIA [None]
  - DRY SKIN [None]
  - REFLUX OESOPHAGITIS [None]
  - ACNE [None]
  - PARONYCHIA [None]
  - INTERSTITIAL LUNG DISEASE [None]
